FAERS Safety Report 5216635-2 (Version None)
Quarter: 2007Q1

REPORT INFORMATION
  Report Type: 
  Country: None (occurrence: None)
  Receive Date: 20061130
  Receipt Date: 20060914
  Transmission Date: 20070707
  Serious: Yes (Hospitalization)
  Sender: FDA-Public Use
  Company Number: US200606005587

PATIENT
  Age: 29 Year
  Sex: Male
  Weight: 88.4 kg

DRUGS (6)
  1. ZYPREXA [Suspect]
     Indication: SCHIZOPHRENIA, PARANOID TYPE
     Dosage: SEE IMAGE
     Dates: end: 20040101
  2. ZYPREXA [Suspect]
     Indication: SCHIZOPHRENIA, PARANOID TYPE
     Dosage: SEE IMAGE
     Dates: start: 19990101
  3. DEPAKOTE [Concomitant]
  4. HALOPERIDOL [Concomitant]
  5. RISPERDAL [Concomitant]
  6. SEROQUEL [Concomitant]

REACTIONS (2)
  - DIABETES MELLITUS [None]
  - SCHIZOPHRENIA, PARANOID TYPE [None]
